FAERS Safety Report 4354583-0 (Version None)
Quarter: 2004Q2

REPORT INFORMATION
  Report Type: 
  Country: None (occurrence: None)
  Receive Date: 20040506
  Receipt Date: 20040506
  Transmission Date: 20050107
  Serious: Yes (Life-Threatening)
  Sender: FDA-Public Use
  Company Number: None

PATIENT
  Age: 84 Year
  Sex: Male

DRUGS (1)
  1. MEPERIDINE HCL [Suspect]
     Indication: PAIN
     Dosage: 25 MG ONCE IV
     Route: 042
     Dates: start: 20040228, end: 20040228

REACTIONS (2)
  - COMA [None]
  - RESPIRATORY RATE DECREASED [None]
